FAERS Safety Report 20580352 (Version 4)
Quarter: 2022Q2

REPORT INFORMATION
  Report Type: Spontaneous
  Country: US (occurrence: US)
  Receive Date: 20220311
  Receipt Date: 20220428
  Transmission Date: 20220721
  Serious: No
  Sender: FDA-Public Use
  Company Number: US-GLAXOSMITHKLINE-US2022041019

PATIENT
  Age: 58 Year
  Sex: Female

DRUGS (1)
  1. BLENREP [Suspect]
     Active Substance: BELANTAMAB MAFODOTIN-BLMF
     Indication: Plasma cell myeloma
     Dosage: 2.5 MG, Z, 2.5 MG ONCE EVERY 3 WEEKS

REACTIONS (6)
  - Illness [Recovered/Resolved]
  - Visual acuity reduced [Unknown]
  - Keratopathy [Unknown]
  - COVID-19 [Unknown]
  - Transfusion [Unknown]
  - Product dose omission issue [Recovered/Resolved]

NARRATIVE: CASE EVENT DATE: 20220101
